FAERS Safety Report 9106441 (Version 3)
Quarter: 2013Q2

REPORT INFORMATION
  Report Type: Spontaneous
  Country: US (occurrence: US)
  Receive Date: 20130221
  Receipt Date: 20130508
  Transmission Date: 20140414
  Serious: Yes (Other)
  Sender: FDA-Public Use
  Company Number: US-PFIZER INC-2013061699

PATIENT
  Age: 73 Year
  Sex: Female
  Weight: 73 kg

DRUGS (8)
  1. LATANOPROST [Suspect]
     Indication: INTRAOCULAR PRESSURE INCREASED
     Dosage: 1 GTT, 1X/DAY (Q24H, HS)
     Route: 047
     Dates: start: 20130110, end: 20130214
  2. LATANOPROST [Suspect]
     Indication: OCULAR HYPERTENSION
  3. MOBIC [Suspect]
     Indication: INFLAMMATION
     Dosage: UNK
     Dates: end: 201302
  4. SIMVASTATIN [Concomitant]
     Indication: BLOOD CHOLESTEROL ABNORMAL
     Dosage: UNK
  5. ASPIRIN [Concomitant]
     Dosage: UNK
  6. GLUCOSAMINE [Concomitant]
     Indication: BONE DISORDER
     Dosage: 1500 MG, 2X/DAY
  7. CHONDROITIN [Concomitant]
     Indication: BONE DISORDER
     Dosage: 1200 MG, 2X/DAY
  8. CALCIUM [Concomitant]
     Indication: BONE DISORDER
     Dosage: UNK

REACTIONS (2)
  - Headache [Not Recovered/Not Resolved]
  - Hypertension [Recovered/Resolved]
